FAERS Safety Report 9050985 (Version 2)
Quarter: 2013Q1

REPORT INFORMATION
  Report Type: Spontaneous
  Country: IT (occurrence: IT)
  Receive Date: 20130205
  Receipt Date: 20130225
  Transmission Date: 20140127
  Serious: Yes (Hospitalization)
  Sender: FDA-Public Use
  Company Number: IT-PFIZER INC-2013046196

PATIENT
  Age: 13 Year
  Sex: Female
  Weight: 57 kg

DRUGS (6)
  1. ALPRAZOLAM [Suspect]
     Dosage: 5 MG, SINGLE (TOTAL (10 TABLET))
     Route: 048
     Dates: start: 20130102, end: 20130102
  2. PANTOPRAZOLE [Suspect]
     Indication: PRODUCT USED FOR UNKNOWN INDICATION
     Dosage: 20MG, 5 DOSAGE FORMS (5 UNITS)
     Route: 048
     Dates: start: 20130102, end: 20130102
  3. SPORANOX [Suspect]
     Indication: PRODUCT USED FOR UNKNOWN INDICATION
     Dosage: 100 MG, SINGLE
     Route: 048
     Dates: start: 20130102, end: 20130102
  4. LAROXYL [Suspect]
     Indication: PRODUCT USED FOR UNKNOWN INDICATION
     Dosage: 10 GTT, STRENGTH 40MG/ML
     Route: 048
     Dates: start: 20130102, end: 20130102
  5. ESOMEPRAZOLE SODIUM [Suspect]
     Indication: PRODUCT USED FOR UNKNOWN INDICATION
     Dosage: 20MG, 5 DOSAGE FORMS (5 UNITS)
     Route: 048
     Dates: start: 20130102, end: 20130102
  6. MORNIFLUMATE [Suspect]
     Indication: PRODUCT USED FOR UNKNOWN INDICATION
     Dosage: 700 MG, 5 DOSAGE FORMS (5 UNITS)
     Route: 048
     Dates: start: 20130102, end: 20130102

REACTIONS (5)
  - Intentional overdose [Recovered/Resolved]
  - Aphasia [Recovered/Resolved]
  - Sopor [Recovered/Resolved]
  - Somnolence [Recovered/Resolved]
  - Hypotension [Unknown]
